FAERS Safety Report 8508759-9 (Version None)
Quarter: 2012Q3

REPORT INFORMATION
  Report Type: 
  Country: None (occurrence: None)
  Receive Date: 20120713
  Receipt Date: 20120710
  Transmission Date: 20120928
  Serious: No
  Sender: FDA-Public Use
  Company Number: US-PFIZER INC-2012129245

PATIENT
  Sex: Male

DRUGS (1)
  1. TIKOSYN [Suspect]
     Indication: ATRIAL FIBRILLATION
     Dosage: 250 UG, 2X/DAY
     Route: 048
     Dates: start: 20110501

REACTIONS (10)
  - FATIGUE [None]
  - FEELING ABNORMAL [None]
  - SKIN BURNING SENSATION [None]
  - CONSTIPATION [None]
  - HEADACHE [None]
  - INCORRECT DOSE ADMINISTERED [None]
  - DEPRESSION [None]
  - HOT FLUSH [None]
  - RASH [None]
  - VISION BLURRED [None]
